FAERS Safety Report 18616791 (Version 1)
Quarter: 2020Q4

REPORT INFORMATION
  Report Type: Spontaneous
  Country: US (occurrence: US)
  Receive Date: 20201214
  Receipt Date: 20201214
  Transmission Date: 20210114
  Serious: No
  Sender: FDA-Public Use
  Company Number: None

PATIENT
  Sex: 0

DRUGS (1)
  1. OTEZLA [Suspect]
     Active Substance: APREMILAST
     Indication: PSORIASIS
     Dosage: ?          OTHER STRENGTH:10/20/30M;?
     Route: 048
     Dates: start: 20201119

REACTIONS (4)
  - Headache [None]
  - Drug ineffective [None]
  - Diarrhoea [None]
  - Vomiting [None]
